FAERS Safety Report 7146543-1 (Version None)
Quarter: 2010Q4

REPORT INFORMATION
  Report Type: 
  Country: None (occurrence: None)
  Receive Date: 20101208
  Receipt Date: 20101129
  Transmission Date: 20110411
  Serious: Yes (Other)
  Sender: FDA-Public Use
  Company Number: CHPA2010US18119

PATIENT
  Sex: Female

DRUGS (4)
  1. EXCEDRIN (MIGRAINE) [Suspect]
     Indication: HEADACHE
     Dosage: 4 DF, QD
     Route: 048
     Dates: end: 20101101
  2. EXCEDRIN (MIGRAINE) [Suspect]
     Dosage: 3 DF, QD
     Route: 048
  3. EXCEDRIN (MIGRAINE) [Suspect]
     Dosage: 2 DF, QD
     Route: 048
  4. EXCEDRIN (MIGRAINE) [Suspect]
     Dosage: 1 DF, QD
     Route: 048

REACTIONS (5)
  - ASTHENIA [None]
  - DRUG DEPENDENCE [None]
  - HEADACHE [None]
  - INTENTIONAL DRUG MISUSE [None]
  - PAIN [None]
